FAERS Safety Report 4703067-6 (Version None)
Quarter: 2005Q2

REPORT INFORMATION
  Report Type: 
  Country: None (occurrence: None)
  Receive Date: 20050628
  Receipt Date: 20050628
  Transmission Date: 20051028
  Serious: Yes (Hospitalization, Other)
  Sender: FDA-Public Use
  Company Number: None

PATIENT
  Age: 59 Year
  Sex: Female
  Weight: 108.8633 kg

DRUGS (2)
  1. DIOVAN HCT [Suspect]
     Indication: BLOOD PRESSURE
     Dosage: 1 X A DAY
  2. MOBIC [Suspect]
     Indication: ARTHRITIS
     Dosage: 1 X A DAY

REACTIONS (7)
  - ASTHENIA [None]
  - EAR PAIN [None]
  - ERYTHEMA [None]
  - LOSS OF CONSCIOUSNESS [None]
  - MOVEMENT DISORDER [None]
  - SYNCOPE [None]
  - VERTIGO [None]
